FAERS Safety Report 4695595-7 (Version None)
Quarter: 2005Q2

REPORT INFORMATION
  Report Type: 
  Country: None (occurrence: None)
  Receive Date: 20050524
  Receipt Date: 20050518
  Transmission Date: 20051028
  Serious: Yes (Disabling, Other)
  Sender: FDA-Public Use
  Company Number: 2005UW07673

PATIENT
  Age: 9 Year
  Sex: Male
  Weight: 34 kg

DRUGS (3)
  1. SEROQUEL [Suspect]
     Indication: ATTENTION DEFICIT/HYPERACTIVITY DISORDER
     Route: 048
  2. ZOLOFT [Concomitant]
  3. PROPRANOLOL [Concomitant]

REACTIONS (2)
  - BLINDNESS [None]
  - DEAFNESS [None]
